FAERS Safety Report 4851814-5 (Version None)
Quarter: 2005Q4

REPORT INFORMATION
  Report Type: 
  Country: None (occurrence: None)
  Receive Date: 20051213
  Receipt Date: 20051021
  Transmission Date: 20060501
  Serious: Yes (Other)
  Sender: FDA-Public Use
  Company Number: 2005UW15931

PATIENT
  Age: 27086 Day
  Sex: Male

DRUGS (10)
  1. CASODEX [Suspect]
     Indication: ADENOCARCINOMA
     Dosage: 150 MG DAILY
     Route: 048
     Dates: start: 20051005
  2. ASCORBIC ACID [Concomitant]
     Indication: VITAMIN SUPPLEMENTATION
     Route: 048
  3. VITAMIN B-12 [Concomitant]
     Indication: VITAMIN SUPPLEMENTATION
     Route: 048
  4. MAGNESIUM [Concomitant]
     Indication: VITAMIN SUPPLEMENTATION
     Route: 048
  5. VITAMIN A [Concomitant]
     Indication: VITAMIN SUPPLEMENTATION
     Route: 048
  6. VITAMIN D [Concomitant]
     Indication: VITAMIN SUPPLEMENTATION
     Route: 048
  7. BETOPTIC DROPS [Concomitant]
     Indication: GLAUCOMA
     Dosage: OU
     Route: 049
  8. AZOPT DROPS [Concomitant]
     Indication: GLAUCOMA
     Dosage: OU
     Route: 049
  9. XALATAN [Concomitant]
     Indication: GLAUCOMA
     Dosage: OU
     Route: 049
  10. BUSERELIN ACETATE [Concomitant]
     Indication: ADENOCARCINOMA
     Route: 058
     Dates: start: 20040701

REACTIONS (4)
  - CONSTIPATION [None]
  - DIZZINESS [None]
  - FATIGUE [None]
  - INTESTINAL SPASM [None]
